FAERS Safety Report 21577241 (Version 2)
Quarter: 2022Q4

REPORT INFORMATION
  Report Type: Spontaneous
  Country: NO (occurrence: NO)
  Receive Date: 20221110
  Receipt Date: 20221219
  Transmission Date: 20230112
  Serious: Yes (Hospitalization)
  Sender: FDA-Public Use
  Company Number: NO-TEVA-2022-NO-2824358

PATIENT
  Age: 8 Decade
  Sex: Male

DRUGS (2)
  1. COLCHICINE [Suspect]
     Active Substance: COLCHICINE
     Indication: Postpericardiotomy syndrome
     Dosage: 0.5 MG X 1
     Route: 065
  2. METHYLPREDNISOLONE [Suspect]
     Active Substance: METHYLPREDNISOLONE
     Indication: Postpericardiotomy syndrome
     Dosage: 12 MG X 1
     Route: 065

REACTIONS (1)
  - Nocardiosis [Recovering/Resolving]
